FAERS Safety Report 25551600 (Version 2)
Quarter: 2025Q3

REPORT INFORMATION
  Report Type: Spontaneous
  Country: US (occurrence: GB)
  Receive Date: 20250714
  Receipt Date: 20250917
  Transmission Date: 20251020
  Serious: Yes (Life-Threatening, Hospitalization)
  Sender: PFIZER
  Company Number: US-PFIZER INC-202500141451

PATIENT
  Age: 21 Year
  Sex: Female

DRUGS (2)
  1. VELSIPITY [Suspect]
     Active Substance: ETRASIMOD ARGININE
     Indication: Colitis ulcerative
     Dosage: 2 MG PER DAY
     Dates: start: 20250607, end: 20250618
  2. VELSIPITY [Suspect]
     Active Substance: ETRASIMOD ARGININE
     Dosage: 2 MG, 1X/DAY
     Route: 048
     Dates: start: 20250607, end: 20250618

REACTIONS (6)
  - Headache [Recovering/Resolving]
  - Anaemia [Recovering/Resolving]
  - Alanine aminotransferase increased [Recovering/Resolving]
  - Aspartate aminotransferase increased [Recovering/Resolving]
  - Blood test abnormal [Recovering/Resolving]
  - Renal function test abnormal [Recovering/Resolving]

NARRATIVE: CASE EVENT DATE: 20250601
